FAERS Safety Report 14519279 (Version 1)
Quarter: 2018Q1

REPORT INFORMATION
  Report Type: Spontaneous
  Country: US (occurrence: US)
  Receive Date: 20180212
  Receipt Date: 20180212
  Transmission Date: 20180509
  Serious: Yes (Hospitalization, Other)
  Sender: FDA-Public Use
  Company Number: US-IPSEN BIOPHARMACEUTICALS, INC.-2018-02278

PATIENT
  Age: 80 Year
  Sex: Female
  Weight: 72.57 kg

DRUGS (9)
  1. VITAMIN B12 [Concomitant]
     Active Substance: CYANOCOBALAMIN
  2. SOMATULINE [Suspect]
     Active Substance: LANREOTIDE ACETATE
     Indication: CARCINOID SYNDROME
     Dosage: 120 MG
     Route: 058
     Dates: start: 2011
  3. CREON [Concomitant]
     Active Substance: PANCRELIPASE AMYLASE\PANCRELIPASE LIPASE\PANCRELIPASE PROTEASE
  4. FLAX OIL [Concomitant]
  5. ONDANSETRON HCL [Concomitant]
     Active Substance: ONDANSETRON HYDROCHLORIDE
     Indication: NAUSEA
     Dosage: AS NEEDED
  6. VITAMIN C [Concomitant]
     Active Substance: ASCORBIC ACID
  7. FISH OIL [Concomitant]
     Active Substance: FISH OIL
  8. METOPROLOL TARTRATE. [Concomitant]
     Active Substance: METOPROLOL TARTRATE
  9. VITAMIN D [Concomitant]
     Active Substance: CHOLECALCIFEROL

REACTIONS (13)
  - Influenza [Recovering/Resolving]
  - Cholecystitis infective [Recovered/Resolved]
  - Hip arthroplasty [Unknown]
  - Malignant neoplasm progression [Unknown]
  - Feeling abnormal [Not Recovered/Not Resolved]
  - Acute sinusitis [Recovering/Resolving]
  - Gait disturbance [Unknown]
  - Inappropriate schedule of drug administration [Unknown]
  - Tremor [Not Recovered/Not Resolved]
  - Bronchitis [Recovering/Resolving]
  - Gastrointestinal neoplasm [Unknown]
  - Dyskinesia [Unknown]
  - Arthropathy [Unknown]

NARRATIVE: CASE EVENT DATE: 2011
